FAERS Safety Report 8903079 (Version 1)
Quarter: 2012Q4

REPORT INFORMATION
  Report Type: 
  Country: US (occurrence: US)
  Receive Date: 20121112
  Receipt Date: 20121112
  Transmission Date: 20130627
  Serious: No
  Sender: FDA-Public Use
  Company Number: US-BIOGENIDEC-2012BI050314

PATIENT
  Age: 56 Year
  Sex: Male

DRUGS (2)
  1. AVONEX [Suspect]
     Indication: MULTIPLE SCLEROSIS
     Route: 030
     Dates: start: 20070607, end: 20091123
  2. AVONEX [Suspect]
     Indication: MULTIPLE SCLEROSIS
     Route: 030
     Dates: start: 201004

REACTIONS (4)
  - Abdominal discomfort [Recovered/Resolved]
  - Gait disturbance [Recovered/Resolved]
  - Muscle tightness [Recovered/Resolved]
  - Multiple sclerosis relapse [Unknown]
